FAERS Safety Report 8728057 (Version 2)
Quarter: 2012Q4

REPORT INFORMATION
  Report Type: 
  Country: US (occurrence: US)
  Receive Date: 20120817
  Receipt Date: 20120912
  Transmission Date: 20130627
  Serious: Yes (Death, Hospitalization, Other)
  Sender: FDA-Public Use
  Company Number: US-AMGEN-USASP2012050928

PATIENT
  Age: 63 Year
  Sex: Male

DRUGS (5)
  1. NEULASTA [Suspect]
     Indication: PRODUCT USED FOR UNKNOWN INDICATION
     Dosage: 6 mg, q3wk
     Route: 058
     Dates: start: 20120731
  2. PROTONIX [Concomitant]
  3. OXYGEN [Concomitant]
  4. ELECTROLYTE SOLUTIONS [Concomitant]
  5. CARDIAZEM                          /00489701/ [Concomitant]

REACTIONS (4)
  - Neoplasm progression [Fatal]
  - Neoplasm malignant [Unknown]
  - Renal failure acute [Unknown]
  - Sepsis [Unknown]
